FAERS Safety Report 4274085-X (Version None)
Quarter: 2004Q1

REPORT INFORMATION
  Report Type: 
  Country: None (occurrence: None)
  Receive Date: 20040120
  Receipt Date: 20040108
  Transmission Date: 20041129
  Serious: Yes (Hospitalization)
  Sender: FDA-Public Use
  Company Number: PL-GLAXOSMITHKLINE-A0491961A

PATIENT
  Age: 70 Year
  Sex: Female

DRUGS (3)
  1. NAVELBINE [Suspect]
     Indication: BREAST CANCER METASTATIC
     Route: 048
     Dates: start: 20030828
  2. NAVELBINE [Suspect]
     Dosage: 20MGM2 SEE DOSAGE TEXT
     Route: 042
     Dates: start: 20030814
  3. DOCETAXEL [Suspect]
     Indication: BREAST CANCER METASTATIC
     Dosage: 60MGM2 SEE DOSAGE TEXT
     Route: 042
     Dates: start: 20030814

REACTIONS (4)
  - GLUCOSE TOLERANCE IMPAIRED [None]
  - LOWER RESPIRATORY TRACT INFLAMMATION [None]
  - PNEUMONITIS [None]
  - SYNCOPE [None]
